FAERS Safety Report 16344223 (Version 1)
Quarter: 2019Q2

REPORT INFORMATION
  Report Type: Spontaneous
  Country: US (occurrence: US)
  Receive Date: 20190522
  Receipt Date: 20190522
  Transmission Date: 20190711
  Serious: No
  Sender: FDA-Public Use
  Company Number: US-009507513-1905USA010007

PATIENT
  Sex: Female

DRUGS (1)
  1. STEGLATRO [Suspect]
     Active Substance: ERTUGLIFLOZIN PIDOLATE
     Indication: GLYCOSYLATED HAEMOGLOBIN INCREASED
     Dosage: ONE 5 MG, TABLET ONCE/DAILY
     Route: 048

REACTIONS (1)
  - Fungal infection [Recovered/Resolved]
